FAERS Safety Report 5097852-1 (Version None)
Quarter: 2006Q3

REPORT INFORMATION
  Report Type: 
  Country: None (occurrence: None)
  Receive Date: 20060905
  Receipt Date: 20060823
  Transmission Date: 20061208
  Serious: Yes (Death)
  Sender: FDA-Public Use
  Company Number: GXKR2006GB05218

PATIENT
  Sex: Male
  Weight: 80 kg

DRUGS (10)
  1. AMIODARONE HCL [Suspect]
     Dosage: ORAL
     Route: 048
     Dates: start: 20050208, end: 20050801
  2. WARFARIN SODIUM [Suspect]
  3. DESLORATADINE (DESLORATADINE) [Concomitant]
  4. DILTIAZEM [Concomitant]
  5. LANSOPRAZOLE [Concomitant]
  6. MONOMAX (ISOSORBIDE MONONITRATE) [Concomitant]
  7. NAPROXEN [Concomitant]
  8. SULFASALAZINE [Concomitant]
  9. SERETIDE (FLUTICASONE PROPIONATE, SALMETEROL XINAFOATE) [Concomitant]
  10. SIMVASTATIN [Concomitant]

REACTIONS (4)
  - DRUG INTERACTION [None]
  - HYPOTHYROIDISM [None]
  - PULMONARY FIBROSIS [None]
  - RESPIRATORY FAILURE [None]
